FAERS Safety Report 23950865 (Version 1)
Quarter: 2024Q2

REPORT INFORMATION
  Report Type: Spontaneous
  Country: US (occurrence: US)
  Receive Date: 20240607
  Receipt Date: 20240607
  Transmission Date: 20240716
  Serious: No
  Sender: FDA-Public Use
  Company Number: US-SPRINGWORKS THERAPEUTICS-SW-001406

PATIENT

DRUGS (2)
  1. OGSIVEO [Suspect]
     Active Substance: NIROGACESTAT HYDROBROMIDE
     Indication: Desmoid tumour
     Dosage: 150 MILLIGRAM, BID
     Dates: start: 20240102, end: 20240116
  2. OGSIVEO [Suspect]
     Active Substance: NIROGACESTAT HYDROBROMIDE
     Dosage: 150 MILLIGRAM, BID
     Dates: start: 20240122

REACTIONS (7)
  - Pruritus [Unknown]
  - Eosinophil count increased [Unknown]
  - Liver function test increased [Unknown]
  - Diarrhoea [Unknown]
  - Fatigue [Unknown]
  - Rash [Recovered/Resolved]
  - Stomatitis [Recovered/Resolved]

NARRATIVE: CASE EVENT DATE: 20240115
